FAERS Safety Report 19415122 (Version 1)
Quarter: 2021Q2

REPORT INFORMATION
  Report Type: Spontaneous
  Country: US (occurrence: US)
  Receive Date: 20210615
  Receipt Date: 20210615
  Transmission Date: 20210717
  Serious: Yes (Hospitalization)
  Sender: FDA-Public Use
  Company Number: US-ROCHE-2846511

PATIENT
  Sex: Female
  Weight: 84.44 kg

DRUGS (11)
  1. DOCUSATE/SENNOSIDES [Concomitant]
     Active Substance: DOCUSATE SODIUM\SENNOSIDES A AND B
     Dosage: AS REQUIRED
  2. ALECENSA [Suspect]
     Active Substance: ALECTINIB HYDROCHLORIDE
     Indication: NON-SMALL CELL LUNG CANCER
     Dosage: ONGOING: YES
     Route: 048
     Dates: start: 20210604
  3. GUAIFENESIN. [Concomitant]
     Active Substance: GUAIFENESIN
     Indication: COUGH
     Dosage: AS REQUIRED
  4. COMPAZINE [Concomitant]
     Active Substance: PROCHLORPERAZINE MALEATE
     Indication: PROPHYLAXIS OF NAUSEA AND VOMITING
     Dosage: AS REQUIRED
  5. TESSALON [Concomitant]
     Active Substance: BENZONATATE
     Dosage: AS REQUIRED
  6. SALMETEROL [Concomitant]
     Active Substance: SALMETEROL
     Indication: DYSPNOEA
     Dosage: AS REQUIRED
     Route: 055
  7. CYCLOBENZAPRINE. [Concomitant]
     Active Substance: CYCLOBENZAPRINE
     Indication: MUSCLE SPASMS
     Dosage: AS REQUIRED
     Dates: start: 202105
  8. IBUPROFEN. [Concomitant]
     Active Substance: IBUPROFEN
  9. OXYCODONE [Concomitant]
     Active Substance: OXYCODONE
     Dosage: TAKEN AS NEEDED EVERY 4?6HRS ;ONGOING: YES
  10. CODEINE [Concomitant]
     Active Substance: CODEINE
     Indication: PAIN
     Dosage: AS REQUIRED
  11. FLUTICASONE. [Concomitant]
     Active Substance: FLUTICASONE
     Indication: DYSPNOEA
     Dosage: AS REQUIRED
     Route: 055

REACTIONS (2)
  - Asthenia [Unknown]
  - Spinal fracture [Unknown]
